FAERS Safety Report 8834044 (Version 2)
Quarter: 2012Q4

REPORT INFORMATION
  Report Type: 
  Country: JP (occurrence: JP)
  Receive Date: 20121010
  Receipt Date: 20121015
  Transmission Date: 20130627
  Serious: Yes (Other)
  Sender: FDA-Public Use
  Company Number: JP-PFIZER INC-2012247717

PATIENT
  Age: 62 Year
  Sex: Male

DRUGS (1)
  1. MORPHINE SULFATE [Suspect]
     Dosage: 220 mg, daily (continuously for more than seven days)
     Route: 042

REACTIONS (2)
  - Toxicity to various agents [Unknown]
  - Altered state of consciousness [Unknown]
